FAERS Safety Report 12548749 (Version 1)
Quarter: 2016Q3

REPORT INFORMATION
  Report Type: Spontaneous
  Country: FR (occurrence: FR)
  Receive Date: 20160712
  Receipt Date: 20160712
  Transmission Date: 20161109
  Serious: Yes (Other)
  Sender: FDA-Public Use
  Company Number: FR-ASTRAZENECA-2016SE74410

PATIENT
  Age: 58 Year
  Sex: Male

DRUGS (5)
  1. STATIN [Concomitant]
     Active Substance: UNSPECIFIED INGREDIENT
  2. ACE [Concomitant]
  3. BETA-BLOCKER [Concomitant]
     Active Substance: UNSPECIFIED INGREDIENT
  4. BRILIQUE [Suspect]
     Active Substance: TICAGRELOR
     Indication: ACUTE CORONARY SYNDROME
     Route: 048
  5. ASPIRIN. [Concomitant]
     Active Substance: ASPIRIN

REACTIONS (2)
  - Epistaxis [Recovered/Resolved]
  - Thrombocytopenia [Unknown]
